FAERS Safety Report 19847261 (Version 1)
Quarter: 2021Q3

REPORT INFORMATION
  Report Type: Spontaneous
  Country: GB (occurrence: IT)
  Receive Date: 20210917
  Receipt Date: 20210917
  Transmission Date: 20211014
  Serious: Yes (Other)
  Sender: FDA-Public Use
  Company Number: IT-ELI_LILLY_AND_COMPANY-IT202109002534

PATIENT
  Age: 36 Year
  Sex: Female

DRUGS (2)
  1. TRASTUZUMAB. [Suspect]
     Active Substance: TRASTUZUMAB
     Indication: TRIPLE POSITIVE BREAST CANCER
     Dosage: 6 MG/KG EVERY THREE WEEKS
     Route: 065
     Dates: start: 202004, end: 2020
  2. GEMCITABINE HYDROCHLORIDE. [Suspect]
     Active Substance: GEMCITABINE HYDROCHLORIDE
     Indication: TRIPLE POSITIVE BREAST CANCER
     Dosage: 1000 MG/M2 .D1, D8 EVERY THREE WEEKS
     Route: 065
     Dates: start: 202004, end: 2020

REACTIONS (3)
  - Thrombocytopenia [Unknown]
  - Hypertransaminasaemia [Unknown]
  - Hepatotoxicity [Unknown]

NARRATIVE: CASE EVENT DATE: 2020
